FAERS Safety Report 4922633-6 (Version None)
Quarter: 2006Q1

REPORT INFORMATION
  Report Type: 
  Country: None (occurrence: None)
  Receive Date: 20060224
  Receipt Date: 20060209
  Transmission Date: 20060701
  Serious: Yes (Hospitalization)
  Sender: FDA-Public Use
  Company Number: PL-JNJFOC-20060104532

PATIENT
  Sex: Male
  Weight: 58 kg

DRUGS (6)
  1. REOPRO [Suspect]
     Dosage: 4.0 ML IN 50 ML DILUENT RATE 2.9 ML/H
     Route: 042
  2. REOPRO [Suspect]
     Indication: ACUTE MYOCARDIAL INFARCTION
     Route: 042
  3. RETEPLASE [Suspect]
     Indication: ACUTE MYOCARDIAL INFARCTION
     Route: 042
  4. HEPARIN [Concomitant]
     Dosage: HEPARIN INFUSION 406 UNITS PER HOUR
     Route: 040
  5. HEPARIN [Concomitant]
     Indication: ACUTE MYOCARDIAL INFARCTION
     Route: 040
  6. ASPIRIN [Concomitant]

REACTIONS (3)
  - GASTRIC PERFORATION [None]
  - GASTROINTESTINAL HAEMORRHAGE [None]
  - PEPTIC ULCER [None]
